FAERS Safety Report 10031799 (Version 2)
Quarter: 2014Q1

REPORT INFORMATION
  Report Type: Spontaneous
  Country: PR (occurrence: PR)
  Receive Date: 20140324
  Receipt Date: 20140324
  Transmission Date: 20141002
  Serious: No
  Sender: FDA-Public Use
  Company Number: PR-BAYER-2013-150002

PATIENT
  Age: 57 Year
  Sex: Female

DRUGS (1)
  1. GADAVIST [Suspect]
     Indication: PRODUCT USED FOR UNKNOWN INDICATION
     Dosage: 8 ML, ONCE
     Route: 042
     Dates: start: 20131205, end: 20131205

REACTIONS (2)
  - Pharyngeal disorder [None]
  - Urticaria [Recovered/Resolved]
